FAERS Safety Report 12224871 (Version 11)
Quarter: 2022Q2

REPORT INFORMATION
  Report Type: Spontaneous
  Country: US (occurrence: US)
  Receive Date: 20160331
  Receipt Date: 20220429
  Transmission Date: 20220720
  Serious: Yes (Hospitalization, Other)
  Sender: FDA-Public Use
  Company Number: US-PFIZER INC-2015436664

PATIENT
  Age: 84 Year
  Sex: Female
  Weight: 49 kg

DRUGS (8)
  1. XELJANZ [Suspect]
     Active Substance: TOFACITINIB CITRATE
     Indication: Rheumatoid arthritis
     Dosage: 5 MG, 2X/DAY
     Dates: start: 2015
  2. XELJANZ [Suspect]
     Active Substance: TOFACITINIB CITRATE
     Dosage: 5 MG, 2X/DAY
     Route: 048
  3. XELJANZ [Suspect]
     Active Substance: TOFACITINIB CITRATE
     Dosage: 10 MG, DAILY (5MG TAKE 2 TABLETS DAILY)
  4. FLUDROCORTISONE [Concomitant]
     Active Substance: FLUDROCORTISONE
     Indication: Cardiac disorder
     Dosage: 1 MG, 1X/DAY
     Route: 048
  5. OMEPRAZOLE [Concomitant]
     Active Substance: OMEPRAZOLE
     Indication: Gastric disorder
     Dosage: 40 MG, 1X/DAY
     Route: 048
  6. LISINOPRIL [Concomitant]
     Active Substance: LISINOPRIL
     Indication: Respiratory disorder
     Dosage: 2.5 MG, DAILY
     Route: 048
  7. METHOTREXATE [Concomitant]
     Active Substance: METHOTREXATE
     Indication: Rheumatoid arthritis
     Dosage: 10 MG, WEEKLY
     Route: 048
  8. ATORVASTATIN [Concomitant]
     Active Substance: ATORVASTATIN
     Dosage: 10 MG, 1X/DAY AT BEDTIME
     Route: 048

REACTIONS (11)
  - Influenza [Not Recovered/Not Resolved]
  - Deafness [Unknown]
  - Drug ineffective [Unknown]
  - Pain [Unknown]
  - Nasopharyngitis [Not Recovered/Not Resolved]
  - Weight decreased [Unknown]
  - Sinusitis [Unknown]
  - Musculoskeletal disorder [Unknown]
  - Illness [Unknown]
  - Intentional dose omission [Unknown]
  - Cardiac disorder [Recovering/Resolving]

NARRATIVE: CASE EVENT DATE: 20151201
